FAERS Safety Report 10489752 (Version 1)
Quarter: 2014Q3

REPORT INFORMATION
  Report Type: Spontaneous
  Country: JP (occurrence: None)
  Receive Date: 20140815
  Receipt Date: 20140815
  Transmission Date: 20150326
  Serious: Yes (Other)
  Sender: FDA-Public Use
  Company Number: ADR-2013-01252

PATIENT
  Sex: Female

DRUGS (1)
  1. GABALON INTRATHECAL [Suspect]
     Active Substance: BACLOFEN

REACTIONS (2)
  - Implant site extravasation [None]
  - Hypersensitivity [None]

NARRATIVE: CASE EVENT DATE: 20130601
